FAERS Safety Report 13398919 (Version 1)
Quarter: 2017Q2

REPORT INFORMATION
  Report Type: Spontaneous
  Country: JP (occurrence: JP)
  Receive Date: 20170404
  Receipt Date: 20170404
  Transmission Date: 20170830
  Serious: No
  Sender: FDA-Public Use
  Company Number: JP-LUPIN PHARMACEUTICALS INC.-2016-00758

PATIENT
  Age: 42 Year
  Sex: Female

DRUGS (2)
  1. SERTRALINE 25MG TABLET ^AMEL^ [Suspect]
     Active Substance: SERTRALINE HYDROCHLORIDE
     Indication: PRODUCT USED FOR UNKNOWN INDICATION
     Dosage: 50 MG,QD,
     Route: 048
     Dates: start: 20151227, end: 20160207
  2. CLOTIAZEPAM [Concomitant]
     Active Substance: CLOTIAZEPAM
     Indication: PRODUCT USED FOR UNKNOWN INDICATION
     Dosage: 5 MG,TID,
     Route: 048
     Dates: start: 20150628

REACTIONS (2)
  - Product substitution issue [Unknown]
  - Night sweats [Unknown]
